FAERS Safety Report 13309380 (Version 2)
Quarter: 2020Q3

REPORT INFORMATION
  Report Type: Report from Study
  Country: US (occurrence: US)
  Receive Date: 20170309
  Receipt Date: 20170313
  Transmission Date: 20201105
  Serious: Yes (Hospitalization, Other)
  Sender: FDA-Public Use
  Company Number: US-JNJFOC-20160919742

PATIENT
  Age: 77 Year
  Sex: Female
  Weight: 107.2 kg

DRUGS (12)
  1. IBRUTINIB [Suspect]
     Active Substance: IBRUTINIB
     Indication: CHRONIC LYMPHOCYTIC LEUKAEMIA
     Route: 048
     Dates: start: 20120906, end: 20160908
  2. COREG [Concomitant]
     Active Substance: CARVEDILOL
     Route: 048
  3. TYLENOL [Concomitant]
     Active Substance: ACETAMINOPHEN
     Indication: PAIN
     Dosage: EVERY 4 HOURS
     Route: 048
  4. SODIUM CHLORIDE. [Concomitant]
     Active Substance: SODIUM CHLORIDE
     Dates: start: 20121130
  5. TOBRADEX [Concomitant]
     Active Substance: DEXAMETHASONE\TOBRAMYCIN
     Dosage: 1 DROP IN THE LEFT EYE EVERY 4 HOURS FOR 5 DAYS
     Route: 047
  6. IBRUTINIB [Suspect]
     Active Substance: IBRUTINIB
     Indication: B-CELL LYMPHOMA
     Route: 048
     Dates: start: 20120906, end: 20160908
  7. BENADRYL [Concomitant]
     Active Substance: DIPHENHYDRAMINE HYDROCHLORIDE
     Route: 042
     Dates: start: 20121130
  8. LOTRISONE [Concomitant]
     Active Substance: BETAMETHASONE DIPROPIONATE\CLOTRIMAZOLE
     Route: 065
  9. VALACYCLOVIR [Concomitant]
     Active Substance: VALACYCLOVIR HYDROCHLORIDE
     Route: 048
  10. DESMOPRESSIN [Concomitant]
     Active Substance: DESMOPRESSIN
     Route: 048
  11. MACROBID [Concomitant]
     Active Substance: NITROFURANTOIN\NITROFURANTOIN MONOHYDRATE
     Route: 048
  12. SYNTHROID [Concomitant]
     Active Substance: LEVOTHYROXINE SODIUM
     Route: 048

REACTIONS (5)
  - Haematoma [Recovered/Resolved]
  - Syncope [Recovered/Resolved with Sequelae]
  - Urinary tract infection [Recovered/Resolved]
  - Anaemia [Recovered/Resolved]
  - Cognitive disorder [Recovered/Resolved with Sequelae]

NARRATIVE: CASE EVENT DATE: 20160912
